FAERS Safety Report 7709070-6 (Version None)
Quarter: 2011Q3

REPORT INFORMATION
  Report Type: 
  Country: None (occurrence: None)
  Receive Date: 20110825
  Receipt Date: 20110815
  Transmission Date: 20111222
  Serious: Yes (Death)
  Sender: FDA-Public Use
  Company Number: US-JNJFOC-20110808770

PATIENT
  Sex: Female

DRUGS (3)
  1. LORTAB [Concomitant]
     Route: 048
  2. LYRICA [Concomitant]
     Route: 048
  3. FENTANYL [Suspect]
     Indication: PAIN
     Dosage: NDC#0781-7240-55
     Route: 062
     Dates: start: 20110805

REACTIONS (3)
  - PAIN [None]
  - DEATH [None]
  - DRUG INEFFECTIVE [None]
